FAERS Safety Report 21621063 (Version 1)
Quarter: 2022Q4

REPORT INFORMATION
  Report Type: Spontaneous
  Country: CA (occurrence: CA)
  Receive Date: 20221121
  Receipt Date: 20221121
  Transmission Date: 20230113
  Serious: Yes (Hospitalization)
  Sender: FDA-Public Use
  Company Number: None

PATIENT
  Age: 10 Year
  Sex: Male
  Weight: 38 kg

DRUGS (15)
  1. CISPLATIN [Suspect]
     Active Substance: CISPLATIN
     Indication: Osteosarcoma
  2. DOXORUBICIN [Suspect]
     Active Substance: DOXORUBICIN
     Indication: Osteosarcoma
  3. ZINECARD [Suspect]
     Active Substance: DEXRAZOXANE HYDROCHLORIDE
     Indication: Osteosarcoma
     Dosage: POWDER FOR SOLUTION
     Route: 042
  4. ACETAMINOPHEN [Concomitant]
     Active Substance: ACETAMINOPHEN
  5. DEXAMETHASONE [Concomitant]
     Active Substance: DEXAMETHASONE
     Route: 014
  6. DIMENHYDRINATE [Concomitant]
     Active Substance: DIMENHYDRINATE
  7. EMEND [Concomitant]
     Active Substance: APREPITANT
  8. FILGRASTIM [Concomitant]
     Active Substance: FILGRASTIM
  9. LANSOPRAZOLE [Concomitant]
     Active Substance: LANSOPRAZOLE
     Dosage: CAPSULE, DELAYED RELEASE
  10. LORAZEPAM [Concomitant]
     Active Substance: LORAZEPAM
  11. METHYLPHENIDATE [Concomitant]
     Active Substance: METHYLPHENIDATE
  12. OLANZAPINE [Concomitant]
     Active Substance: OLANZAPINE
  13. ONDANSETRON [Concomitant]
     Active Substance: ONDANSETRON
  14. POLYETHYLENE GLYCOL [Concomitant]
     Active Substance: POLYETHYLENE GLYCOL
  15. TRIMETHOPRIM SULFATE [Concomitant]
     Active Substance: TRIMETHOPRIM SULFATE

REACTIONS (2)
  - Febrile neutropenia [Recovered/Resolved]
  - Gastroenteritis viral [Recovered/Resolved]
